FAERS Safety Report 4475524-1 (Version None)
Quarter: 2004Q4

REPORT INFORMATION
  Report Type: 
  Country: None (occurrence: None)
  Receive Date: 20041015
  Receipt Date: 20041006
  Transmission Date: 20050328
  Serious: Yes (Other)
  Sender: FDA-Public Use
  Company Number: JP-JNJFOC-20040700482

PATIENT
  Sex: Male

DRUGS (3)
  1. ITRIZOLE [Suspect]
     Indication: ONYCHOMYCOSIS
     Dosage: PULSE THERAPY 400MG/DAY
     Route: 049
     Dates: start: 20040610, end: 20040616
  2. DOXAZOSIN MESYLATE [Interacting]
     Indication: HYPERTENSION
     Route: 049
  3. NISOLDIPINE [Interacting]
     Indication: HYPERTENSION
     Route: 049

REACTIONS (6)
  - DRUG INTERACTION [None]
  - FACE OEDEMA [None]
  - FEELING ABNORMAL [None]
  - OEDEMA PERIPHERAL [None]
  - RENAL IMPAIRMENT [None]
  - THIRST [None]
